FAERS Safety Report 5870969-7 (Version None)
Quarter: 2008Q3

REPORT INFORMATION
  Report Type: 
  Country: None (occurrence: None)
  Receive Date: 20080904
  Receipt Date: 20080904
  Transmission Date: 20090109
  Serious: Yes (Other)
  Sender: FDA-Public Use
  Company Number: CI-BOEHRINGER INGELHEIM GMBH, GERMANY-2008-DE-01284GD

PATIENT
  Sex: Female

DRUGS (12)
  1. NEVIRAPINE [Suspect]
     Indication: HIV INFECTION
  2. NEVIRAPINE [Suspect]
     Indication: HUMAN IMMUNODEFICIENCY VIRUS TRANSMISSION
  3. NEVIRAPINE [Suspect]
     Indication: PROPHYLAXIS
  4. ZIDOVUDINE [Suspect]
     Indication: HIV INFECTION
  5. ZIDOVUDINE [Suspect]
     Indication: HUMAN IMMUNODEFICIENCY VIRUS TRANSMISSION
  6. ZIDOVUDINE [Suspect]
     Indication: PROPHYLAXIS
  7. LAMIVUDINE [Suspect]
     Indication: HIV INFECTION
  8. LAMIVUDINE [Suspect]
     Indication: HUMAN IMMUNODEFICIENCY VIRUS TRANSMISSION
  9. LAMIVUDINE [Suspect]
     Indication: PROPHYLAXIS
  10. STAVUDINE [Suspect]
     Indication: HIV INFECTION
  11. STAVUDINE [Suspect]
     Indication: HUMAN IMMUNODEFICIENCY VIRUS TRANSMISSION
  12. STAVUDINE [Suspect]
     Indication: PROPHYLAXIS

REACTIONS (2)
  - ABORTION SPONTANEOUS [None]
  - STILLBIRTH [None]
